FAERS Safety Report 5704597-0 (Version None)
Quarter: 2008Q2

REPORT INFORMATION
  Report Type: 
  Country: None (occurrence: None)
  Receive Date: 20080409
  Receipt Date: 20080422
  Transmission Date: 20081010
  Serious: Yes (Hospitalization)
  Sender: FDA-Public Use
  Company Number: 2005S1001642

PATIENT
  Sex: Female

DRUGS (1)
  1. PHOSPHOSODA GINGER LEMON [Suspect]
     Dosage: 45 ML;X1;PO
     Route: 048

REACTIONS (8)
  - BLOOD CREATININE INCREASED [None]
  - BLOOD UREA INCREASED [None]
  - DECREASED APPETITE [None]
  - FEELING COLD [None]
  - NASOPHARYNGITIS [None]
  - NAUSEA [None]
  - RED BLOOD CELLS URINE POSITIVE [None]
  - URINE LEUKOCYTE ESTERASE POSITIVE [None]
